FAERS Safety Report 8910809 (Version 1)
Quarter: 2012Q4

REPORT INFORMATION
  Report Type: Spontaneous
  Country: QA (occurrence: None)
  Receive Date: 20121113
  Receipt Date: 20121113
  Transmission Date: 20130627
  Serious: Yes (Death)
  Sender: FDA-Public Use
  Company Number: USA/QAT/0026579

PATIENT
  Age: 60 Year
  Sex: Female

DRUGS (9)
  1. OMEPRAZOLE [Suspect]
     Indication: PEPTIC ULCER
     Dosage: 20 mg, 1 in 1 D, Unknown
  2. ATORVASTATIN [Suspect]
     Indication: HYPERLIPIDEMIA
     Dosage: 20 mg, 1 in 1 D, Unknown
  3. DEXAMETHASONE [Suspect]
     Indication: SPINAL CORD COMPRESSION
     Dosage: 8 mg, 2 in 1 D, Unknown
  4. DEXAMETHASONE [Suspect]
     Indication: SPINAL CORD COMPRESSION
     Dosage: 6 mg, 2 in 1 D, Unknown
  5. CALCIUM CARBONATE [Concomitant]
  6. TRAMADOL (TRAMADOL) [Concomitant]
  7. CELECOXIB [Concomitant]
  8. GABAPENTIN (GABAPENTIN) [Concomitant]
  9. BISACODYL (BISACODYL) [Concomitant]

REACTIONS (6)
  - Drug interaction [None]
  - Dyspnoea [None]
  - Lethargy [None]
  - Rhabdomyolysis [None]
  - Escherichia sepsis [None]
  - Urosepsis [None]
